FAERS Safety Report 6033373-7 (Version None)
Quarter: 2009Q1

REPORT INFORMATION
  Report Type: 
  Country: None (occurrence: None)
  Receive Date: 20090105
  Receipt Date: 20080925
  Transmission Date: 20090719
  Serious: Yes (Hospitalization)
  Sender: FDA-Public Use
  Company Number: US-001882

PATIENT
  Age: 48 Year
  Sex: Female

DRUGS (3)
  1. MULTIHANCE [Suspect]
     Indication: HYPERPROLACTINAEMIA
     Dosage: 20ML QD INTRAVENOUS (NOT OTHERWISE SPECIFIED)
     Route: 042
     Dates: start: 20080910, end: 20080910
  2. MULTIHANCE [Suspect]
     Indication: NUCLEAR MAGNETIC RESONANCE IMAGING BRAIN
     Dosage: 20ML QD INTRAVENOUS (NOT OTHERWISE SPECIFIED)
     Route: 042
     Dates: start: 20080910, end: 20080910
  3. ATIVAN [Concomitant]

REACTIONS (1)
  - HYPERSENSITIVITY [None]
